FAERS Safety Report 6986041-9 (Version None)
Quarter: 2010Q3

REPORT INFORMATION
  Report Type: 
  Country: None (occurrence: None)
  Receive Date: 20100910
  Receipt Date: 20100823
  Transmission Date: 20110219
  Serious: Yes (Other)
  Sender: FDA-Public Use
  Company Number: 20100411

PATIENT

DRUGS (2)
  1. METHYLENE BLUE INJECTION, USP (0310-10) 10 MG/ML [Suspect]
     Indication: VASOPLEGIA SYNDROME
     Dosage: 2 MG/KG LOADING + 0.5 MG/KG/H INTRAVENOUS DRIP
     Route: 041
  2. VASOCONSTRICTORS [Concomitant]

REACTIONS (1)
  - BRAIN HYPOXIA [None]
